FAERS Safety Report 9064407 (Version 2)
Quarter: 2013Q1

REPORT INFORMATION
  Report Type: Report from Study
  Country: CA (occurrence: CA)
  Receive Date: 20130128
  Receipt Date: 20130129
  Transmission Date: 20140127
  Serious: Yes (Other)
  Sender: FDA-Public Use
  Company Number: PHHY2013CA007196

PATIENT
  Sex: Female

DRUGS (4)
  1. ACLASTA [Suspect]
     Indication: OSTEOPOROSIS
     Dosage: 5 MG, UNK
     Route: 042
     Dates: start: 20111026
  2. ACLASTA [Suspect]
     Dosage: 5 MG, UNK
     Route: 042
     Dates: start: 20121101
  3. CALCIUM [Concomitant]
     Dosage: 500 MG, UNK
  4. VITAMIN D [Concomitant]
     Dosage: 10000 UKN, UNK

REACTIONS (2)
  - Ankle fracture [Recovering/Resolving]
  - Pain [Recovering/Resolving]
